FAERS Safety Report 20536203 (Version 4)
Quarter: 2022Q2

REPORT INFORMATION
  Report Type: Spontaneous
  Country: TW (occurrence: TW)
  Receive Date: 20220302
  Receipt Date: 20220427
  Transmission Date: 20220721
  Serious: Yes (Disabling, Other)
  Sender: FDA-Public Use
  Company Number: TW-NOVARTISPH-NVSC2022TW043992

PATIENT
  Age: 75 Year
  Sex: Male
  Weight: 56 kg

DRUGS (2)
  1. DIOVAN [Suspect]
     Active Substance: VALSARTAN
     Indication: Blood pressure increased
     Dosage: 160 MG
     Route: 065
     Dates: start: 20210805, end: 20210805
  2. NIFEDIPINE [Suspect]
     Active Substance: NIFEDIPINE
     Indication: Product used for unknown indication
     Dosage: UNK
     Route: 065

REACTIONS (9)
  - Cerebral infarction [Unknown]
  - Brain injury [Unknown]
  - Hemiplegia [Unknown]
  - Paraplegia [Unknown]
  - Brain hypoxia [Unknown]
  - Overdose [Recovered/Resolved]
  - Tremor [Unknown]
  - Nervous system disorder [Unknown]
  - Blood glucose increased [Unknown]

NARRATIVE: CASE EVENT DATE: 20210805
